FAERS Safety Report 5514917-8 (Version None)
Quarter: 2007Q4

REPORT INFORMATION
  Report Type: 
  Country: None (occurrence: None)
  Receive Date: 20071113
  Receipt Date: 20061003
  Transmission Date: 20080405
  Serious: No
  Sender: FDA-Public Use
  Company Number: A0622320A

PATIENT
  Age: 72 Year
  Sex: Male

DRUGS (6)
  1. COREG [Suspect]
     Indication: HYPERTENSION
     Dosage: 3.125MG TWICE PER DAY
     Route: 048
  2. ETHANOL [Suspect]
     Route: 048
  3. COZAAR [Concomitant]
  4. ASPIRIN [Concomitant]
  5. LIPITOR [Concomitant]
  6. PRILOSEC [Concomitant]

REACTIONS (1)
  - ALCOHOL INTOLERANCE [None]
